FAERS Safety Report 8428667-1 (Version None)
Quarter: 2012Q2

REPORT INFORMATION
  Report Type: 
  Country: None (occurrence: None)
  Receive Date: 20120323
  Receipt Date: 20110817
  Transmission Date: 20120825
  Serious: Yes (Other)
  Sender: FDA-Public Use
  Company Number: 163-21880-11071165

PATIENT
  Age: 88 Year
  Sex: Male

DRUGS (4)
  1. PREDNISONE TAB [Concomitant]
  2. REVLIMID [Suspect]
     Indication: MULTIPLE MYELOMA
     Dosage: 15 MG, QD, PO
     Route: 048
     Dates: start: 20110215, end: 20110303
  3. LASIX [Concomitant]
  4. COUMADIN [Concomitant]

REACTIONS (2)
  - MUSCLE SPASMS [None]
  - CARDIAC FAILURE CONGESTIVE [None]
